FAERS Safety Report 7029410-3 (Version None)
Quarter: 2010Q4

REPORT INFORMATION
  Report Type: 
  Country: None (occurrence: None)
  Receive Date: 20101005
  Receipt Date: 20100929
  Transmission Date: 20110411
  Serious: Yes (Other)
  Sender: FDA-Public Use
  Company Number: CHPA2010US15511

PATIENT
  Age: 64 Year
  Sex: Female
  Weight: 81.633 kg

DRUGS (2)
  1. VOLTAREN [Suspect]
     Indication: ARTHRALGIA
     Dosage: 2 G, BID
     Route: 061
  2. VOLTAREN [Suspect]
     Indication: PAIN IN EXTREMITY

REACTIONS (2)
  - FOOT OPERATION [None]
  - OFF LABEL USE [None]
